FAERS Safety Report 12724136 (Version 2)
Quarter: 2016Q4

REPORT INFORMATION
  Report Type: Spontaneous
  Country: JP (occurrence: JP)
  Receive Date: 20160908
  Receipt Date: 20161004
  Transmission Date: 20170207
  Serious: Yes (Hospitalization)
  Sender: FDA-Public Use
  Company Number: JP-SHIONOGI, INC-2016000855

PATIENT
  Age: 80 Year
  Sex: Male

DRUGS (2)
  1. ZOSYN [Suspect]
     Active Substance: PIPERACILLIN SODIUM\TAZOBACTAM SODIUM
     Indication: SEPSIS
     Dosage: UNK
     Route: 042
     Dates: end: 201608
  2. FINIBAX [Suspect]
     Active Substance: DORIPENEM MONOHYDRATE
     Indication: SEPSIS
     Dosage: 1.5 G, QD
     Route: 042
     Dates: start: 201608

REACTIONS (1)
  - Blood potassium increased [Unknown]

NARRATIVE: CASE EVENT DATE: 201608
